FAERS Safety Report 9650398 (Version 2)
Quarter: 2013Q4

REPORT INFORMATION
  Report Type: Spontaneous
  Country: US (occurrence: US)
  Receive Date: 20131028
  Receipt Date: 20131028
  Transmission Date: 20140711
  Serious: Yes (Other)
  Sender: FDA-Public Use
  Company Number: US-NAPPMUNDI-USA-2013-0100912

PATIENT
  Sex: Female

DRUGS (6)
  1. OXYCONTIN (NDA 22-272) [Suspect]
     Indication: MIGRAINE
     Dosage: 20 MG, UNK
     Route: 048
  2. OXYCONTIN (NDA 22-272) [Suspect]
     Indication: INTERVERTEBRAL DISC DEGENERATION
     Dosage: 40 MG, TID
     Route: 048
  3. OXYCONTIN (NDA 22-272) [Suspect]
     Indication: PAIN
     Dosage: 60 MG, Q8H
     Route: 048
  4. OXYCODONE HCL TABLETS (91-490) [Concomitant]
     Indication: MIGRAINE
     Dosage: 15 MG, Q4H PRN
     Route: 048
  5. OXYCODONE HCL TABLETS (91-490) [Concomitant]
     Indication: INTERVERTEBRAL DISC DEGENERATION
  6. OXYCODONE HCL TABLETS (91-490) [Concomitant]
     Indication: BREAKTHROUGH PAIN

REACTIONS (9)
  - Drug dependence [Unknown]
  - Medication residue present [Unknown]
  - Pain [Unknown]
  - Impaired work ability [Unknown]
  - Hyperhidrosis [Unknown]
  - Feeling abnormal [Unknown]
  - Somnolence [Unknown]
  - Drug ineffective [Unknown]
  - Drug tolerance [Unknown]
